FAERS Safety Report 5491161-4 (Version None)
Quarter: 2007Q4

REPORT INFORMATION
  Report Type: 
  Country: None (occurrence: None)
  Receive Date: 20071019
  Receipt Date: 20071009
  Transmission Date: 20080405
  Serious: Yes (Other)
  Sender: FDA-Public Use
  Company Number: US-GILEAD-2007-0013802

PATIENT
  Age: 85 Year
  Sex: Female

DRUGS (1)
  1. LETAIRIS [Suspect]

REACTIONS (2)
  - DYSURIA [None]
  - OEDEMA [None]
